FAERS Safety Report 6106873-9 (Version None)
Quarter: 2009Q1

REPORT INFORMATION
  Report Type: 
  Country: None (occurrence: None)
  Receive Date: 20090302
  Receipt Date: 20090216
  Transmission Date: 20090719
  Serious: Yes (Hospitalization)
  Sender: FDA-Public Use
  Company Number: 2009-00036

PATIENT
  Age: 66 Year
  Sex: Male
  Weight: 95 kg

DRUGS (4)
  1. VELCADE [Suspect]
     Indication: MULTIPLE MYELOMA
     Dosage: 1.3 MG/M2, INTRAVENOUS; INTRAVENOUS
     Route: 042
     Dates: start: 20080912, end: 20081216
  2. VELCADE [Suspect]
     Indication: MULTIPLE MYELOMA
     Dosage: 1.3 MG/M2, INTRAVENOUS; INTRAVENOUS
     Route: 042
     Dates: start: 20090106
  3. THALIDOMIDE [Suspect]
     Indication: MULTIPLE MYELOMA
     Dosage: 100 MG, ORAL
     Route: 048
     Dates: start: 20080912, end: 20081220
  4. PREDNISONE [Suspect]
     Indication: MULTIPLE MYELOMA
     Dosage: 120 MG, ORAL
     Route: 048
     Dates: start: 20080912, end: 20081205

REACTIONS (6)
  - BONE PAIN [None]
  - CHEST PAIN [None]
  - COLD SWEAT [None]
  - DISEASE PROGRESSION [None]
  - MULTIPLE MYELOMA [None]
  - PNEUMONIA [None]
